FAERS Safety Report 7296647-8 (Version None)
Quarter: 2011Q1

REPORT INFORMATION
  Report Type: 
  Country: None (occurrence: None)
  Receive Date: 20110216
  Receipt Date: 20110210
  Transmission Date: 20110831
  Serious: Yes (Hospitalization)
  Sender: FDA-Public Use
  Company Number: PHHY2011JP11359

PATIENT
  Sex: Female

DRUGS (2)
  1. LAMISIL [Suspect]
     Dosage: 125 MG, UNK
     Route: 048
  2. AMARYL [Suspect]
     Indication: DIABETES MELLITUS
     Dosage: 3 MG, UNK
     Route: 048

REACTIONS (1)
  - HYPOGLYCAEMIA [None]
